FAERS Safety Report 19501585 (Version 1)
Quarter: 2021Q3

REPORT INFORMATION
  Report Type: Spontaneous
  Country: US (occurrence: US)
  Receive Date: 20210703
  Receipt Date: 20210703
  Transmission Date: 20211014
  Serious: Yes (Hospitalization)
  Sender: FDA-Public Use
  Company Number: None

PATIENT
  Age: 59 Year
  Sex: Female

DRUGS (1)
  1. REVLIMID [Suspect]
     Active Substance: LENALIDOMIDE
     Indication: PARAPROTEINAEMIA
     Route: 048
     Dates: start: 20200713

REACTIONS (3)
  - Deep vein thrombosis [None]
  - Peripheral swelling [None]
  - Pulmonary embolism [None]

NARRATIVE: CASE EVENT DATE: 20210502
